FAERS Safety Report 21317891 (Version 1)
Quarter: 2022Q3

REPORT INFORMATION
  Report Type: Spontaneous
  Country: US (occurrence: US)
  Receive Date: 20220911
  Receipt Date: 20220911
  Transmission Date: 20221027
  Serious: No
  Sender: FDA-Public Use
  Company Number: US-SA-SAC20220824001675

PATIENT
  Age: 24 Year
  Sex: Male

DRUGS (3)
  1. ALPROLIX [Suspect]
     Active Substance: EFTRENONACOG ALFA
     Dosage: 6000 UNITS ( +/- 10 % ) PROPHYLACTIC AND PRN DOSE
     Route: 065
  2. ALPROLIX [Suspect]
     Active Substance: EFTRENONACOG ALFA
     Dosage: 6000 UNITS ( +/- 10 % ) PROPHYLACTIC AND PRN DOSE
     Route: 065
  3. AMICAR [Suspect]
     Active Substance: AMINOCAPROIC ACID
     Dosage: UNK

REACTIONS (2)
  - Tongue injury [Unknown]
  - Wound secretion [Unknown]

NARRATIVE: CASE EVENT DATE: 20220812
